FAERS Safety Report 26055268 (Version 3)
Quarter: 2025Q4

REPORT INFORMATION
  Report Type: Spontaneous
  Country: US (occurrence: US)
  Receive Date: 20251117
  Receipt Date: 20251201
  Transmission Date: 20260117
  Serious: Yes (Hospitalization)
  Sender: PFIZER
  Company Number: US-MLMSERVICE-20251106-PI702253-00145-1

PATIENT
  Age: 32 Year
  Sex: Male
  Weight: 105 kg

DRUGS (9)
  1. FENTANYL CITRATE [Suspect]
     Active Substance: FENTANYL CITRATE
     Indication: Induction of anaesthesia
     Dosage: 50 UG
  2. PROPOFOL [Suspect]
     Active Substance: PROPOFOL
     Indication: Induction of anaesthesia
     Dosage: 50 MG
  3. PROPOFOL [Suspect]
     Active Substance: PROPOFOL
     Dosage: 100 MCG/KG/MIN; CONTINUOUS INFUSIONS
  4. DEXMEDETOMIDINE HYDROCHLORIDE [Suspect]
     Active Substance: DEXMEDETOMIDINE HYDROCHLORIDE
     Indication: Induction of anaesthesia
     Dosage: 0.5 MCG/KG/HR; CONTINUOUS INFUSIONS
  5. REMIFENTANIL [Suspect]
     Active Substance: REMIFENTANIL
     Indication: Induction of anaesthesia
     Dosage: 0.03 MCG/KG/MIN; CONTINUOUS INFUSIONS
  6. BUPIVACAINE [Concomitant]
     Active Substance: BUPIVACAINE
     Indication: Nerve block
     Dosage: 0.5% WITH 1:200000 EPINEPHRINE ON OPERATIVE (L) SIDE
  7. BUPIVACAINE [Concomitant]
     Active Substance: BUPIVACAINE
     Dosage: 0.25% WITH 1:200000 EPINEPHRINE ON OPERATIVE RIGHT SIDE
  8. EPINEPHRINE [Concomitant]
     Active Substance: EPINEPHRINE
     Dosage: 1:200000 WITH 0.5%BUPIVACAINE ON OPERATIVE(L)SIDE/1:200000 WITH 0.25%BUPIVACAINE ON OPERATIVE(R)SIDE
  9. OXYGEN [Concomitant]
     Active Substance: OXYGEN
     Dosage: 6 L/MIN VIA NASAL CANNULA (FIO2 30%)
     Route: 045

REACTIONS (1)
  - Oxygen saturation decreased [Recovered/Resolved]
